FAERS Safety Report 4360158-X (Version None)
Quarter: 2004Q2

REPORT INFORMATION
  Report Type: 
  Country: None (occurrence: None)
  Receive Date: 20040518
  Receipt Date: 20040518
  Transmission Date: 20050107
  Serious: No
  Sender: FDA-Public Use
  Company Number: None

PATIENT
  Age: 38 Year
  Sex: Female

DRUGS (1)
  1. FUZEON [Suspect]
     Indication: HIV INFECTION
     Dosage: 90 MG SC BID
     Route: 058
     Dates: start: 20040512, end: 20040516

REACTIONS (6)
  - CONVULSION [None]
  - DYSPNOEA [None]
  - FEELING HOT [None]
  - FLUSHING [None]
  - INJECTION SITE ERYTHEMA [None]
  - INJECTION SITE PRURITUS [None]
